FAERS Safety Report 14368676 (Version 1)
Quarter: 2018Q1

REPORT INFORMATION
  Report Type: Spontaneous
  Country: US (occurrence: US)
  Receive Date: 20180109
  Receipt Date: 20180109
  Transmission Date: 20180509
  Serious: No
  Sender: FDA-Public Use
  Company Number: US-PFIZER INC-2017346756

PATIENT
  Age: 14 Year
  Sex: Male
  Weight: 107 kg

DRUGS (4)
  1. GENOTROPIN [Suspect]
     Active Substance: SOMATROPIN
     Indication: GROWTH HORMONE DEFICIENCY
     Dosage: 4.0 MG, DAILY
     Dates: start: 2017
  2. GENOTROPIN [Suspect]
     Active Substance: SOMATROPIN
     Dosage: 4.0 MG, DAILY
     Route: 058
     Dates: start: 20170714
  3. GENOTROPIN [Suspect]
     Active Substance: SOMATROPIN
     Dosage: 4 MG, 1X/DAY
     Dates: start: 201608, end: 20171222
  4. OMEGA-3 FISH OIL [Concomitant]
     Active Substance: FISH OIL\OMEGA-3 FATTY ACIDS
     Dosage: 1000 MG, DAILY
     Route: 048

REACTIONS (2)
  - Glucose tolerance impaired [Unknown]
  - Drug dose omission [Not Recovered/Not Resolved]

NARRATIVE: CASE EVENT DATE: 2017
